FAERS Safety Report 7973398-5 (Version None)
Quarter: 2011Q4

REPORT INFORMATION
  Report Type: 
  Country: None (occurrence: None)
  Receive Date: 20111213
  Receipt Date: 20110824
  Transmission Date: 20120403
  Serious: No
  Sender: FDA-Public Use
  Company Number: US-AMGEN-USASP2011043428

PATIENT
  Age: 85 Year
  Sex: Male

DRUGS (2)
  1. ARANESP [Suspect]
     Indication: CHRONIC LYMPHOCYTIC LEUKAEMIA
     Dosage: 300 MUG, UNK
     Dates: start: 20110601
  2. DEFEROXAMINE MESYLATE [Concomitant]

REACTIONS (1)
  - HAEMOGLOBIN ABNORMAL [None]
